FAERS Safety Report 4650861-6 (Version None)
Quarter: 2005Q2

REPORT INFORMATION
  Report Type: 
  Country: None (occurrence: None)
  Receive Date: 20050429
  Receipt Date: 20050429
  Transmission Date: 20051028
  Serious: Yes (Other)
  Sender: FDA-Public Use
  Company Number: None

PATIENT
  Age: 65 Year
  Sex: Male
  Weight: 80.7403 kg

DRUGS (10)
  1. ZIAGEN [Suspect]
     Indication: HIV INFECTION
     Dosage: 1 QD
     Dates: start: 20050418, end: 20050426
  2. RETROVIR [Suspect]
  3. EPIVIR [Suspect]
  4. DIFLUCAN [Concomitant]
  5. LOTRISONE [Concomitant]
  6. ZYRTEC [Concomitant]
  7. DIOVAN [Concomitant]
  8. BACTRIM DS [Concomitant]
  9. RANITIDINE [Concomitant]
  10. NORVASC [Concomitant]

REACTIONS (13)
  - ABDOMINAL PAIN [None]
  - ANOREXIA [None]
  - ARTHRALGIA [None]
  - CHILLS [None]
  - DIARRHOEA [None]
  - DRUG HYPERSENSITIVITY [None]
  - FATIGUE [None]
  - HEADACHE [None]
  - MALAISE [None]
  - MYALGIA [None]
  - NAUSEA [None]
  - PYREXIA [None]
  - VOMITING [None]
